FAERS Safety Report 8814654 (Version 3)
Quarter: 2012Q4

REPORT INFORMATION
  Report Type: Report from Study
  Country: NL (occurrence: NL)
  Receive Date: 20120928
  Receipt Date: 20121128
  Transmission Date: 20130627
  Serious: Yes (Hospitalization)
  Sender: FDA-Public Use
  Company Number: NL-GENZYME-CLOF-1002305

PATIENT
  Age: 23 Year
  Sex: Male
  Weight: 79 kg

DRUGS (12)
  1. EVOLTRA [Suspect]
     Indication: ACUTE LYMPHOCYTIC LEUKAEMIA
     Dosage: 60 mg, qd
     Route: 065
     Dates: start: 20120114, end: 20120118
  2. EVOLTRA [Suspect]
     Dosage: 61 mg, qd
     Route: 065
     Dates: start: 20120421, end: 20120425
  3. METHOTREXATE [Suspect]
     Indication: ACUTE LYMPHOCYTIC LEUKAEMIA
     Dosage: 15 mg, UNK
     Route: 037
     Dates: start: 20120524
  4. DEXAMETHASONE [Suspect]
     Indication: ACUTE LYMPHOCYTIC LEUKAEMIA
     Dosage: 4 mg, UNK
     Route: 037
     Dates: start: 20120524
  5. DEXAMETHASONE [Suspect]
     Dosage: 10 mg, UNK
     Route: 048
     Dates: start: 20120524
  6. VINDESINE [Suspect]
     Indication: ACUTE LYMPHOCYTIC LEUKAEMIA
     Dosage: 4 mg, UNK
     Route: 065
     Dates: start: 20120524
  7. ADRIAMYCIN [Suspect]
     Indication: ACUTE LYMPHOCYTIC LEUKAEMIA
     Dosage: 50 mg, UNK
     Route: 065
     Dates: start: 20120524
  8. PEG-ASPARAGINASE [Suspect]
     Indication: ACUTE LYMPHOCYTIC LEUKAEMIA
     Dosage: 2025 iu, UNK
     Route: 065
     Dates: start: 20120527
  9. THIOGUANINE [Suspect]
     Indication: ACUTE LYMPHOCYTIC LEUKAEMIA
     Dosage: 120 mg, UNK
     Route: 048
     Dates: start: 20120625, end: 20120702
  10. THIOGUANINE [Suspect]
     Dosage: UNK
     Route: 065
     Dates: start: 2012
  11. ETOPOSIDE [Suspect]
     Indication: ACUTE LYMPHOCYTIC LEUKAEMIA
     Dosage: 304 mg, UNK
     Route: 065
     Dates: start: 20120625
  12. ARA-C [Suspect]
     Indication: ACUTE LYMPHOCYTIC LEUKAEMIA
     Dosage: 120 mg, UNK
     Route: 058
     Dates: start: 20120625

REACTIONS (3)
  - Lung infection [Unknown]
  - Alanine aminotransferase increased [Unknown]
  - Bacteraemia [Recovered/Resolved]
